FAERS Safety Report 7207989-6 (Version None)
Quarter: 2011Q1

REPORT INFORMATION
  Report Type: 
  Country: None (occurrence: None)
  Receive Date: 20110104
  Receipt Date: 20101224
  Transmission Date: 20110831
  Serious: Yes (Hospitalization)
  Sender: FDA-Public Use
  Company Number: JP-NOVOPROD-320289

PATIENT
  Age: 67 Year
  Sex: Male
  Weight: 46 kg

DRUGS (7)
  1. PANCREAZE [Concomitant]
     Dosage: 2 TAB, QD
     Route: 048
     Dates: start: 20091001, end: 20101214
  2. AMARYL [Concomitant]
     Dosage: 0.5-2 MG
     Route: 048
     Dates: start: 20101107, end: 20101214
  3. VICTOZA [Suspect]
     Indication: TYPE 2 DIABETES MELLITUS
     Dosage: 0.3-0.9 MG, QD
     Route: 058
     Dates: start: 20100727, end: 20101214
  4. LOSARTAN POTASSIUM AND HYDROCHLOROTHIAZIDE [Concomitant]
     Dosage: 1 TAB, QD
     Route: 048
     Dates: start: 20080201, end: 20101214
  5. COLONEL [Concomitant]
     Dosage: 500 MG, QD
     Route: 048
     Dates: start: 20100901, end: 20101214
  6. CRESTOR [Concomitant]
     Dosage: 2.5 MG, QD
     Route: 048
     Dates: end: 20101214
  7. STANZOME [Concomitant]
     Dosage: 15 MG, QD
     Route: 048
     Dates: end: 20101214

REACTIONS (1)
  - PANCREATIC CARCINOMA [None]
